FAERS Safety Report 8879740 (Version 2)
Quarter: 2013Q2

REPORT INFORMATION
  Report Type: Spontaneous
  Country: US (occurrence: None)
  Receive Date: 20120426
  Receipt Date: 20120703
  Transmission Date: 20140414
  Serious: Yes (Other)
  Sender: FDA-Public Use
  Company Number: PHEH2012US002416

PATIENT
  Age: 20 Year
  Sex: Female

DRUGS (5)
  1. GILENYA (FTY) [Suspect]
     Indication: MULTIPLE SCLEROSIS
     Route: 048
     Dates: start: 20111028
  2. LEVONORGESTREL (LEVONORGESTREL) [Concomitant]
  3. WELLBUTRIN (BUPROPION HYDROCHLORIDE) [Concomitant]
  4. ALBUTEROL (SALBUTAMOL) [Concomitant]
  5. LYBREL [Concomitant]

REACTIONS (3)
  - Rash [None]
  - Blister [None]
  - Pruritus [None]
